FAERS Safety Report 11653420 (Version 3)
Quarter: 2015Q4

REPORT INFORMATION
  Report Type: Spontaneous
  Country: CO (occurrence: CO)
  Receive Date: 20151022
  Receipt Date: 20151022
  Transmission Date: 20160304
  Serious: Yes (Hospitalization)
  Sender: FDA-Public Use
  Company Number: CO-JNJFOC-20151012839

PATIENT
  Age: 15 Year
  Sex: Female
  Weight: 30 kg

DRUGS (2)
  1. REMICADE [Suspect]
     Active Substance: INFLIXIMAB
     Indication: COLITIS ULCERATIVE
     Dosage: FREQUENCY 0, 2, 6 AND MAINTAINANCE DOSE 6 WEEKS AT 50MG/HOUR
     Route: 042
     Dates: start: 20150916
  2. REMICADE [Suspect]
     Active Substance: INFLIXIMAB
     Indication: COLITIS ULCERATIVE
     Route: 042
     Dates: start: 20151013

REACTIONS (6)
  - Frequent bowel movements [Recovered/Resolved]
  - Depressed mood [Recovered/Resolved]
  - Tachycardia [Recovered/Resolved]
  - Inappropriate schedule of drug administration [Unknown]
  - Haemoglobin decreased [Recovered/Resolved]
  - Off label use [Unknown]

NARRATIVE: CASE EVENT DATE: 20150916
